FAERS Safety Report 6915917-3 (Version None)
Quarter: 2010Q3

REPORT INFORMATION
  Report Type: 
  Country: None (occurrence: None)
  Receive Date: 20100804
  Receipt Date: 20100722
  Transmission Date: 20110219
  Serious: Yes (Hospitalization)
  Sender: FDA-Public Use
  Company Number: 016003

PATIENT
  Sex: Female
  Weight: 93.4 kg

DRUGS (2)
  1. LACOSAMIDE [Suspect]
     Indication: EPILEPSY
     Dosage: 450 MG TID ORAL
     Route: 048
     Dates: start: 20100411
  2. CARBAMAZEPINE [Concomitant]

REACTIONS (2)
  - DIARRHOEA [None]
  - PARTIAL SEIZURES [None]
